FAERS Safety Report 23231419 (Version 2)
Quarter: 2024Q3

REPORT INFORMATION
  Report Type: Spontaneous
  Country: US (occurrence: US)
  Receive Date: 20231127
  Receipt Date: 20240822
  Transmission Date: 20241016
  Serious: No
  Sender: AVADEL CNS PHARMA
  Company Number: US-AVADEL CNS PHARMACEUTICALS, LLC-2023AVA00318

PATIENT
  Age: 20 Year
  Sex: Male

DRUGS (21)
  1. LUMRYZ [Suspect]
     Active Substance: SODIUM OXYBATE
     Indication: Narcolepsy
     Dosage: 6 G, 1X/DAY NIGHTLY
     Dates: start: 202310
  2. LUMRYZ [Suspect]
     Active Substance: SODIUM OXYBATE
     Indication: Narcolepsy
     Dosage: 9 G, ONCE NIGHTLY AT BEDTIME
     Route: 048
  3. LUMRYZ [Suspect]
     Active Substance: SODIUM OXYBATE
     Dosage: 9 G, ONCE NIGHTLY
     Route: 048
  4. BENADRYL ALLERGY [Concomitant]
     Active Substance: DIPHENHYDRAMINE HYDROCHLORIDE
     Dosage: UNK
  5. ALLEGRA [Concomitant]
     Active Substance: FEXOFENADINE HYDROCHLORIDE
     Dosage: UNK
  6. IRON [Concomitant]
     Active Substance: IRON
  7. VITAMIN K [Concomitant]
     Active Substance: PHYTONADIONE
  8. VITAMIN D2 [Concomitant]
     Active Substance: ERGOCALCIFEROL
  9. VITAMIN C [Concomitant]
     Active Substance: ASCORBIC ACID
  10. FISH OIL [Concomitant]
     Active Substance: FISH OIL
  11. NUVIGIL [Concomitant]
     Active Substance: ARMODAFINIL
  12. FLONASE ALLERGY RELIEF [Concomitant]
     Active Substance: FLUTICASONE PROPIONATE
  13. ASCORBIC ACID [Concomitant]
     Active Substance: ASCORBIC ACID
  14. PROPRANOLOL HYDROCHLORIDE [Concomitant]
     Active Substance: PROPRANOLOL HYDROCHLORIDE
     Dosage: 20 MG, ONCE NIGHTLY
  15. FLUDROCORTISONE ACETATE [Concomitant]
     Active Substance: FLUDROCORTISONE ACETATE
     Dosage: 0.2 MG, IN THE MORNINGS
  16. ESCITALOPRAM OXALATE [Concomitant]
     Active Substance: ESCITALOPRAM OXALATE
  17. ERGOCALCIFEROL [Concomitant]
     Active Substance: ERGOCALCIFEROL
     Dosage: ERGOCALCIFEROL 200 MCG/ML DROPS
  18. ARMODAFINIL [Concomitant]
     Active Substance: ARMODAFINIL
     Dosage: 250 MG, IN THE MORNINGS
  19. CITALOPRAM [Concomitant]
     Active Substance: CITALOPRAM\CITALOPRAM HYDROBROMIDE
     Dosage: 20 MG, ONCE NIGHTLY
  20. OMEGA-3 FATTY ACIDS [Concomitant]
     Active Substance: OMEGA-3 FATTY ACIDS
  21. VITAMIN B12 [Concomitant]
     Active Substance: CYANOCOBALAMIN

REACTIONS (4)
  - COVID-19 [Not Recovered/Not Resolved]
  - Somnolence [Not Recovered/Not Resolved]
  - Hypertension [Recovering/Resolving]
  - Intentional dose omission [Recovered/Resolved]

NARRATIVE: CASE EVENT DATE: 20231001
